FAERS Safety Report 6187479-2 (Version None)
Quarter: 2009Q2

REPORT INFORMATION
  Report Type: 
  Country: None (occurrence: None)
  Receive Date: 20090512
  Receipt Date: 20090427
  Transmission Date: 20091009
  Serious: Yes (Death)
  Sender: FDA-Public Use
  Company Number: NO-ROCHE-630570

PATIENT

DRUGS (1)
  1. TRETINOIN [Suspect]
     Dosage: TREATMENT REPEATED EVERY THIRD MONTH.
     Route: 048

REACTIONS (1)
  - SEPSIS [None]
